FAERS Safety Report 7688947-4 (Version None)
Quarter: 2011Q3

REPORT INFORMATION
  Report Type: 
  Country: None (occurrence: None)
  Receive Date: 20110817
  Receipt Date: 20110810
  Transmission Date: 20111222
  Serious: Yes (Hospitalization)
  Sender: FDA-Public Use
  Company Number: PHHO2011US09572

PATIENT
  Sex: Male
  Weight: 54.4 kg

DRUGS (8)
  1. VIMPAT [Interacting]
     Indication: EPILEPSY
     Dosage: 50 MG, BID
     Route: 048
     Dates: start: 20110527, end: 20110531
  2. TRILEPTAL [Interacting]
     Indication: EPILEPSY
     Dosage: 900 MG, BID
     Route: 048
     Dates: start: 20100101
  3. AFINITOR [Interacting]
     Dosage: 17 MG AM
     Route: 048
     Dates: start: 20101203
  4. KEPPRA [Concomitant]
     Indication: EPILEPSY
     Dosage: 1000 MG AM, 1500 MG PM
     Route: 048
     Dates: start: 20090101
  5. KEPPRA [Concomitant]
     Dosage: 1500 MG, UNK
     Route: 048
  6. AFINITOR [Suspect]
     Indication: ASTROCYTOMA, LOW GRADE
     Dosage: 7 MG, AM
     Route: 048
     Dates: start: 20100821, end: 20100910
  7. AFINITOR [Interacting]
     Dosage: 10 MG, AM
     Route: 048
     Dates: start: 20100911, end: 20100922
  8. AFINITOR [Interacting]
     Dosage: 13 MG, AM
     Route: 048
     Dates: start: 20100923, end: 20101202

REACTIONS (2)
  - COMPLEX PARTIAL SEIZURES [None]
  - DRUG INTERACTION [None]
